FAERS Safety Report 20700449 (Version 1)
Quarter: 2022Q2

REPORT INFORMATION
  Report Type: Spontaneous
  Country: US (occurrence: None)
  Receive Date: 20220410
  Receipt Date: 20220410
  Transmission Date: 20220720
  Serious: No
  Sender: FDA-Public Use
  Company Number: None

PATIENT
  Age: 53 Year
  Sex: Female
  Weight: 58.5 kg

DRUGS (1)
  1. TYMLOS [Suspect]
     Active Substance: ABALOPARATIDE
     Indication: Osteoporosis
     Dates: start: 20210804

REACTIONS (1)
  - Palpitations [None]

NARRATIVE: CASE EVENT DATE: 20220408
